FAERS Safety Report 7042973-7 (Version None)
Quarter: 2010Q4

REPORT INFORMATION
  Report Type: 
  Country: None (occurrence: None)
  Receive Date: 20101013
  Receipt Date: 20100930
  Transmission Date: 20110411
  Serious: Yes (Hospitalization, Other)
  Sender: FDA-Public Use
  Company Number: US-CELGENEUS-163-21880-10100112

PATIENT
  Sex: Female

DRUGS (1)
  1. REVLIMID [Suspect]
     Indication: MULTIPLE MYELOMA
     Route: 048
     Dates: start: 20100913, end: 20100929

REACTIONS (8)
  - ARTHRALGIA [None]
  - BLOOD GLUCOSE INCREASED [None]
  - COUGH [None]
  - FAECALOMA [None]
  - NAUSEA [None]
  - PNEUMONIA [None]
  - PYREXIA [None]
  - SWELLING [None]
